FAERS Safety Report 18508154 (Version 3)
Quarter: 2022Q2

REPORT INFORMATION
  Report Type: Spontaneous
  Country: US (occurrence: US)
  Receive Date: 20201116
  Receipt Date: 20220419
  Transmission Date: 20220720
  Serious: No
  Sender: FDA-Public Use
  Company Number: US-PFIZER INC-2017004299

PATIENT
  Age: 58 Year
  Sex: Female

DRUGS (1)
  1. CELEBREX [Suspect]
     Active Substance: CELECOXIB
     Indication: Musculoskeletal pain
     Dosage: 200 MG, 2X/DAY(TAKE ONE PILL BY MOUTH TWICE A DAY AS NEEDED)
     Route: 048

REACTIONS (2)
  - Malaise [Unknown]
  - Hand deformity [Unknown]
